FAERS Safety Report 22167674 (Version 1)
Quarter: 2023Q2

REPORT INFORMATION
  Report Type: Spontaneous
  Country: US (occurrence: US)
  Receive Date: 20230403
  Receipt Date: 20230403
  Transmission Date: 20230722
  Serious: No
  Sender: FDA-Public Use
  Company Number: US-PFIZER INC-202300140047

PATIENT
  Age: 60 Year
  Sex: Female

DRUGS (1)
  1. IBRANCE [Suspect]
     Active Substance: PALBOCICLIB
     Dosage: 125 MG, DAILY (TAKE 1 TABLET (125 MG TOTAL) DAILY ON DAYS 1 THROUGH 21 OF A 28 DAY CYCLE)
     Dates: start: 20210501

REACTIONS (1)
  - White blood cell count decreased [Not Recovered/Not Resolved]
